FAERS Safety Report 14476153 (Version 1)
Quarter: 2018Q1

REPORT INFORMATION
  Report Type: Spontaneous
  Country: US (occurrence: US)
  Receive Date: 20180201
  Receipt Date: 20180201
  Transmission Date: 20180509
  Serious: Yes (Death)
  Sender: FDA-Public Use
  Company Number: None

PATIENT
  Age: 80 Year
  Sex: Female

DRUGS (13)
  1. DALIRESP [Concomitant]
     Active Substance: ROFLUMILAST
  2. ALBUTEROL. [Concomitant]
     Active Substance: ALBUTEROL
  3. VERAPAMIL [Concomitant]
     Active Substance: VERAPAMIL HYDROCHLORIDE
  4. PROLIA [Concomitant]
     Active Substance: DENOSUMAB
  5. FORTEO [Suspect]
     Active Substance: TERIPARATIDE
     Indication: OSTEOPOROSIS
     Route: 058
  6. IPRATROPIUM [Concomitant]
     Active Substance: IPRATROPIUM
  7. VITAMIN D3 [Concomitant]
     Active Substance: CHOLECALCIFEROL
  8. PANTOPRAZOLE [Concomitant]
     Active Substance: PANTOPRAZOLE
  9. LEVABUTEROL [Concomitant]
  10. AZITHROMYCIN ANHYDROUS. [Concomitant]
     Active Substance: AZITHROMYCIN ANHYDROUS
  11. PREDNISONE. [Concomitant]
     Active Substance: PREDNISONE
  12. POT CL MICRO TABLET [Concomitant]
  13. ANORO ELLIP [Concomitant]

REACTIONS (1)
  - Death [None]

NARRATIVE: CASE EVENT DATE: 20180130
